FAERS Safety Report 7479738 (Version 3)
Quarter: 2014Q1

REPORT INFORMATION
  Report Type: Spontaneous
  Country: US (occurrence: US)
  Receive Date: 20100716
  Receipt Date: 20140109
  Transmission Date: 20141002
  Serious: Yes (Other)
  Sender: FDA-Public Use
  Company Number: US-BAYER-201027782NA

PATIENT
  Age: 20 Year
  Sex: Female

DRUGS (5)
  1. OCELLA [Suspect]
     Indication: PRODUCT USED FOR UNKNOWN INDICATION
     Route: 048
  2. XANAX [Concomitant]
  3. ZYRTEC [Concomitant]
  4. DILAUDID [Concomitant]
  5. ZOFRAN [Concomitant]

REACTIONS (3)
  - Abdominal pain upper [Unknown]
  - Cholecystectomy [None]
  - Cholecystitis [None]
